FAERS Safety Report 20817637 (Version 1)
Quarter: 2022Q2

REPORT INFORMATION
  Report Type: Spontaneous
  Country: GR (occurrence: GR)
  Receive Date: 20220512
  Receipt Date: 20220512
  Transmission Date: 20220721
  Serious: Yes (Hospitalization)
  Sender: FDA-Public Use
  Company Number: GR-LUPIN PHARMACEUTICALS INC.-2022-06778

PATIENT
  Age: 27 Year
  Sex: Female

DRUGS (2)
  1. METFORMIN [Suspect]
     Active Substance: METFORMIN HYDROCHLORIDE
     Indication: Polycystic ovaries
     Dosage: UNK
     Route: 065
  2. RIFAXIMIN [Concomitant]
     Active Substance: RIFAXIMIN
     Indication: Overgrowth bacterial
     Dosage: 400 MG, TID
     Route: 048

REACTIONS (2)
  - Blood glucose decreased [Unknown]
  - Off label use [Unknown]
